FAERS Safety Report 10705776 (Version 1)
Quarter: 2015Q1

REPORT INFORMATION
  Report Type: Spontaneous
  Country: US (occurrence: US)
  Receive Date: 20150112
  Receipt Date: 20150112
  Transmission Date: 20150721
  Serious: Yes (Death, Other)
  Sender: FDA-Public Use
  Company Number: US-GLAXOSMITHKLINE-US2015GSK001473

PATIENT
  Age: 30 Year
  Sex: Male

DRUGS (4)
  1. DIPHENHYDRAMINE [Suspect]
     Active Substance: DIPHENHYDRAMINE
     Route: 048
  2. CLONAZEPAM. [Suspect]
     Active Substance: CLONAZEPAM
     Route: 048
  3. METHANOL [Suspect]
     Active Substance: METHYL ALCOHOL
     Route: 048
  4. BUPROPION [Suspect]
     Active Substance: BUPROPION
     Route: 048

REACTIONS (1)
  - Completed suicide [Fatal]
